FAERS Safety Report 5301513-0 (Version None)
Quarter: 2007Q2

REPORT INFORMATION
  Report Type: 
  Country: None (occurrence: None)
  Receive Date: 20070412
  Receipt Date: 20070328
  Transmission Date: 20071010
  Serious: Yes (Life-Threatening)
  Sender: FDA-Public Use
  Company Number: SPV1-2007-01832

PATIENT
  Age: 34 Year
  Sex: Female

DRUGS (5)
  1. PENTASA [Suspect]
     Indication: COLITIS ULCERATIVE
     Dosage: SEE IMAGE
     Route: 048
     Dates: start: 20070226, end: 20070314
  2. PENTASA [Suspect]
     Indication: COLITIS ULCERATIVE
     Dosage: SEE IMAGE
     Route: 048
     Dates: start: 20070315, end: 20070317
  3. PENTASA [Suspect]
     Indication: COLITIS ULCERATIVE
     Dosage: SEE IMAGE
     Route: 048
     Dates: start: 20070318, end: 20070318
  4. PENTASA [Suspect]
     Indication: COLITIS ULCERATIVE
     Dosage: SEE IMAGE
     Route: 048
     Dates: start: 20070319, end: 20070319
  5. MEROPEN /01250501/(MEROPENEM) [Suspect]
     Indication: SEPSIS
     Dosage: 1 G DAILY, INTRAVENOUS
     Route: 042
     Dates: start: 20070315, end: 20070319

REACTIONS (7)
  - DECREASED IMMUNE RESPONSIVENESS [None]
  - DIARRHOEA [None]
  - GASTROENTERITIS [None]
  - INFLAMMATORY BOWEL DISEASE [None]
  - PYREXIA [None]
  - RENAL IMPAIRMENT [None]
  - SEPSIS [None]
